FAERS Safety Report 20978590 (Version 1)
Quarter: 2022Q2

REPORT INFORMATION
  Report Type: Spontaneous
  Country: US (occurrence: US)
  Receive Date: 20220618
  Receipt Date: 20220618
  Transmission Date: 20220721
  Serious: No
  Sender: FDA-Public Use
  Company Number: US-SA-SAC20220616001946

PATIENT
  Age: 38 Year
  Sex: Female

DRUGS (36)
  1. FABRAZYME [Suspect]
     Active Substance: AGALSIDASE BETA
     Indication: Renal transplant
     Dosage: 65 MG, QOW
     Dates: start: 20070323
  2. CEPHALEXIN [Concomitant]
     Active Substance: CEPHALEXIN
  3. HEPARIN [Concomitant]
     Active Substance: HEPARIN SODIUM
  4. DULCOLAX (BISACODYL) [Concomitant]
     Active Substance: BISACODYL
  5. PNEUMOVAX 23 [Concomitant]
     Active Substance: PNEUMOCOCCAL VACCINE, POLYVALENT 23
     Dosage: INJECTION
  6. NITROFURANTOIN [Concomitant]
     Active Substance: NITROFURANTOIN
  7. VITAMIN D3 [Concomitant]
     Active Substance: CHOLECALCIFEROL
  8. EPINEPHRINE [Concomitant]
     Active Substance: EPINEPHRINE
  9. ZOFRAN [Concomitant]
     Active Substance: ONDANSETRON HYDROCHLORIDE
  10. PROCHLORPERAZINE [Concomitant]
     Active Substance: PROCHLORPERAZINE
  11. PROGESTERONE [Concomitant]
     Active Substance: PROGESTERONE
  12. SEVELAMER CARBONATE [Concomitant]
     Active Substance: SEVELAMER CARBONATE
  13. NIFEDIPINE [Concomitant]
     Active Substance: NIFEDIPINE
  14. LIDOCAINE\PRILOCAINE [Concomitant]
     Active Substance: LIDOCAINE\PRILOCAINE
  15. DOCUSATE SODIUM [Concomitant]
     Active Substance: DOCUSATE SODIUM
  16. STERILE WATER [Concomitant]
     Active Substance: WATER
  17. BISACODYL [Concomitant]
     Active Substance: BISACODYL
  18. SODIUM CHLORIDE [Concomitant]
     Active Substance: SODIUM CHLORIDE
  19. WARFARIN SODIUM [Concomitant]
     Active Substance: WARFARIN SODIUM
  20. MECLIZINE HYDROCHLORIDE [Concomitant]
     Active Substance: MECLIZINE HYDROCHLORIDE
  21. PANTOPRAZOLE SODIUM [Concomitant]
     Active Substance: PANTOPRAZOLE SODIUM
  22. GABAPENTIN [Concomitant]
     Active Substance: GABAPENTIN
  23. MACROCID [Concomitant]
  24. HYDROXYZINE HYDROCHLORIDE [Concomitant]
     Active Substance: HYDROXYZINE HYDROCHLORIDE
  25. ACETAMINOPHEN [Concomitant]
     Active Substance: ACETAMINOPHEN
  26. SHINGRIX [Concomitant]
     Active Substance: RECOMBINANT VARICELLA ZOSTER VIRUS (VZV) GLYCOPROTEIN E
  27. LOSARTAN POTASSIUM [Concomitant]
     Active Substance: LOSARTAN POTASSIUM
  28. CODEINE [Concomitant]
     Active Substance: CODEINE
  29. MIRALAX [Concomitant]
     Active Substance: POLYETHYLENE GLYCOL 3350
  30. ASPIRIN BP [Concomitant]
  31. TRIAMCINOLONE ACETONIDE [Concomitant]
     Active Substance: TRIAMCINOLONE ACETONIDE
  32. PFIZER-BIONTECH COVID-19 VACCINE [Concomitant]
     Active Substance: TOZINAMERAN
  33. SODIUM CHLORIDE [Concomitant]
     Active Substance: SODIUM CHLORIDE
  34. MAGNESIUM [Concomitant]
     Active Substance: MAGNESIUM
  35. COLD + FLU [PARACETAMOL] [Concomitant]
  36. SEVERE SINUS CONGESTION + PAIN DAYTIME [Concomitant]

REACTIONS (6)
  - Catheter site infection [Unknown]
  - Peritoneal dialysis [Unknown]
  - Tenderness [Unknown]
  - Drainage [Unknown]
  - Catheter removal [Unknown]
  - Catheter placement [Unknown]

NARRATIVE: CASE EVENT DATE: 20220616
